FAERS Safety Report 4887332-8 (Version None)
Quarter: 2005Q4

REPORT INFORMATION
  Report Type: 
  Country: None (occurrence: None)
  Receive Date: 20051221
  Receipt Date: 20050829
  Transmission Date: 20060501
  Serious: No
  Sender: FDA-Public Use
  Company Number: US-YAMANOUCHI-YPA20050462

PATIENT
  Sex: Female

DRUGS (3)
  1. VESICARE [Suspect]
     Dosage: 5 MG PO
     Route: 048
  2. ANTICHOLESTEROL [Concomitant]
  3. INSULIN [Concomitant]

REACTIONS (1)
  - BLOOD GLUCOSE INCREASED [None]
